FAERS Safety Report 7657426-2 (Version None)
Quarter: 2011Q3

REPORT INFORMATION
  Report Type: 
  Country: None (occurrence: None)
  Receive Date: 20110804
  Receipt Date: 20110802
  Transmission Date: 20111222
  Serious: Yes (Life-Threatening, Hospitalization)
  Sender: FDA-Public Use
  Company Number: JP-B.I. PHARMACEUTICALS,INC./RIDGEFIELD-2011-BP-16289NB

PATIENT
  Sex: Male
  Weight: 58 kg

DRUGS (10)
  1. PANCREAZE [Concomitant]
     Indication: ABDOMINAL DISCOMFORT
     Route: 048
     Dates: start: 20080201
  2. F LASE [Concomitant]
     Route: 048
  3. PRADAXA [Suspect]
     Indication: ATRIAL FIBRILLATION
     Dosage: 300 MG
     Route: 048
     Dates: start: 20110611, end: 20110613
  4. POLYFUL [Concomitant]
     Indication: ABDOMINAL DISCOMFORT
     Dosage: 3.6 G
     Route: 048
     Dates: start: 20100801
  5. MAGNESIUM OXIDE [Concomitant]
     Indication: ABDOMINAL DISCOMFORT
     Dosage: 350 MG
     Route: 048
     Dates: start: 20080801
  6. DISOPYRAMIDE PHOSPHATE [Concomitant]
     Route: 048
  7. GASMOTIN [Concomitant]
     Indication: ABDOMINAL DISCOMFORT
     Dosage: 15 MG
     Route: 048
     Dates: start: 20100101
  8. NORPACE [Concomitant]
     Indication: ATRIAL FIBRILLATION
     Dosage: 150 MG
     Route: 048
     Dates: start: 20110401
  9. MUCOSTA [Concomitant]
     Indication: ABDOMINAL DISCOMFORT
     Dosage: 300 MG
     Route: 048
     Dates: start: 20080201
  10. BIOFERMIN [Concomitant]
     Indication: ABDOMINAL DISCOMFORT
     Dosage: 3 G
     Route: 048
     Dates: start: 20080901

REACTIONS (6)
  - DEHYDRATION [None]
  - NAUSEA [None]
  - VOMITING [None]
  - COLD SWEAT [None]
  - DECREASED APPETITE [None]
  - CEREBELLAR HAEMORRHAGE [None]
